FAERS Safety Report 22394774 (Version 1)
Quarter: 2023Q2

REPORT INFORMATION
  Report Type: Spontaneous
  Country: US (occurrence: None)
  Receive Date: 20230531
  Receipt Date: 20230531
  Transmission Date: 20230722
  Serious: Yes (Death)
  Sender: FDA-Public Use
  Company Number: None

PATIENT
  Age: 79 Year
  Sex: Male

DRUGS (18)
  1. PREDNISONE [Suspect]
     Active Substance: PREDNISONE
     Indication: Metastases to bone
     Dosage: FREQUENCY : DAILY;?
     Route: 048
     Dates: start: 202201
  2. ABIRATERONE ACETATE [Suspect]
     Active Substance: ABIRATERONE ACETATE
     Indication: Metastases to bone
     Dosage: FREQUENCY : DAILY;?
     Route: 048
     Dates: start: 202201
  3. METFORMIN [Concomitant]
     Active Substance: METFORMIN HYDROCHLORIDE
  4. TRADJENTA [Concomitant]
  5. METOPROLOL [Concomitant]
     Active Substance: METOPROLOL
  6. XTANDI [Concomitant]
     Active Substance: ENZALUTAMIDE
  7. BUMETANIDE [Concomitant]
     Active Substance: BUMETANIDE
  8. VYTORIN [Concomitant]
     Active Substance: EZETIMIBE\SIMVASTATIN
  9. LEVOTHYROXINE [Concomitant]
  10. PANTOPRAZOLE [Concomitant]
  11. AMIODARONE [Concomitant]
  12. VITAMIN C [Concomitant]
  13. VITAMIN D2 [Concomitant]
     Active Substance: ERGOCALCIFEROL
  14. FERROUS FUMARATE\FOLIC ACID\VITAMIN B COMPLEX [Concomitant]
     Active Substance: FERROUS FUMARATE\FOLIC ACID\VITAMIN B COMPLEX
  15. GABAPENTIN [Concomitant]
     Active Substance: GABAPENTIN
  16. ELIQUIS [Concomitant]
  17. PLAVIX [Concomitant]
  18. ADULT ASPIRIN [Concomitant]

REACTIONS (1)
  - Death [None]

NARRATIVE: CASE EVENT DATE: 20230515
